FAERS Safety Report 4621495-4 (Version None)
Quarter: 2005Q1

REPORT INFORMATION
  Report Type: 
  Country: None (occurrence: None)
  Receive Date: 20050328
  Receipt Date: 20050322
  Transmission Date: 20050727
  Serious: Yes (Death)
  Sender: FDA-Public Use
  Company Number: 2005-126683-NL

PATIENT
  Age: 31 Year
  Sex: Male

DRUGS (3)
  1. MIRTAZAPINE [Suspect]
     Dosage: DF
  2. CLOZAPINE [Suspect]
     Indication: SCHIZOPHRENIA
     Dosage: SCHIZOPHRENIA NOS
     Dates: start: 19960108
  3. ALCOHOL [Suspect]
     Dosage: DF

REACTIONS (5)
  - ALCOHOL USE [None]
  - CARDIAC ARREST [None]
  - FEELING ABNORMAL [None]
  - OVERDOSE [None]
  - SUICIDAL IDEATION [None]
